FAERS Safety Report 6371273-3 (Version None)
Quarter: 2009Q3

REPORT INFORMATION
  Report Type: 
  Country: None (occurrence: None)
  Receive Date: 20090923
  Receipt Date: 20070726
  Transmission Date: 20100115
  Serious: No
  Sender: FDA-Public Use
  Company Number: US-ASTRAZENECA-2007UW02082

PATIENT
  Age: 12627 Day
  Sex: Female
  Weight: 68.5 kg

DRUGS (51)
  1. SEROQUEL [Suspect]
     Indication: DEPRESSION
     Route: 048
     Dates: start: 19990401
  2. SEROQUEL [Suspect]
     Dosage: 25 MG-200 MG
     Route: 048
     Dates: start: 20000630
  3. PROZAC [Concomitant]
     Dosage: 20 MG-40 MG
  4. PROZAC [Concomitant]
     Dosage: 20 MG PULVULE
  5. ZYRTEC [Concomitant]
  6. AMBIEN [Concomitant]
     Dosage: 5 MG-10 MG
  7. ASTELIN [Concomitant]
     Dosage: 137 MCG, 2 SPRAYS EACH NOSTRIL TWO TIMES A DAY
  8. FLONASE 0.05% [Concomitant]
     Dosage: 2 SPRAYS EACH NOSTRIL DAILY
  9. SEREVENT [Concomitant]
     Dosage: 2 PUFFS TWO TIMES A DAY
  10. SINGULAIR [Concomitant]
     Route: 048
  11. PREVACID [Concomitant]
     Route: 048
  12. PREVACID [Concomitant]
  13. TEQUIN [Concomitant]
  14. OXYCODONE HCL AND ACETAMINOPHEN [Concomitant]
     Dosage: 5/325 MG UNKNOWN
  15. PROMETHAZINE [Concomitant]
  16. PROMETHAZINE W/ CODEINE [Concomitant]
  17. PREDNISONE [Concomitant]
  18. XOPENEX [Concomitant]
     Dosage: TWO TIME TO THREE TIMES A DAY
  19. METROGEL [Concomitant]
     Route: 067
  20. DOXIDAN [Concomitant]
  21. SONATA [Concomitant]
  22. TIGAN [Concomitant]
  23. RIOPAN PLUS [Concomitant]
  24. TYLENOL (CAPLET) [Concomitant]
     Dosage: 325 MG-500 MG
  25. NITROSTAT [Concomitant]
  26. PROVENTIL-HFA [Concomitant]
  27. SYNAREL [Concomitant]
     Dosage: 2MG/ML
  28. LOVENOX [Concomitant]
  29. HUMIBID LA [Concomitant]
  30. FUROSEMIDE [Concomitant]
     Route: 048
  31. SULPHAMETHAXAZOLE/TMP [Concomitant]
     Dosage: TAKE ONE TABLET TWO TIMES A DAY
  32. COMBIVENT [Concomitant]
     Dosage: TWO PUFFS  EVERY FOUR TO SIX HOURS AS NEEDED
  33. COMBIVENT [Concomitant]
     Dosage: 103 MCG-18 MCG
  34. COUMADIN [Concomitant]
     Dosage: 0.5 MG -11/2 MG
     Route: 048
  35. SKELAXIN [Concomitant]
     Indication: MUSCLE TIGHTNESS
     Dosage: TAKE 1-2 TABLETS 4 TIMES A DAY
  36. EPIPEN [Concomitant]
     Dosage: 0.3 MG AUTOINJECTOR
  37. DYAZIDE [Concomitant]
     Dosage: DAILY
     Route: 048
  38. SELENIUM SULF [Concomitant]
     Dosage: 2.5 % SHAMPOO
  39. DICLOFENAC POT [Concomitant]
     Indication: MUSCULOSKELETAL PAIN
     Dosage: 50 MG-100 MG
     Route: 048
  40. MACROBID [Concomitant]
  41. BENADRYL [Concomitant]
  42. LORATADINE [Concomitant]
     Route: 048
  43. LIPITOR [Concomitant]
     Dosage: DAILY AT BEDTIME
     Route: 048
  44. LIPITOR [Concomitant]
     Route: 048
  45. LORAZEPAM [Concomitant]
  46. NEXIUM [Concomitant]
     Route: 048
  47. NEXIUM [Concomitant]
     Route: 048
  48. METFORMIN HCL [Concomitant]
     Route: 048
  49. LEVOTHYROXINE SODIUM [Concomitant]
     Route: 048
  50. ENABLEX [Concomitant]
     Route: 048
  51. ALLEGRA [Concomitant]
     Route: 048

REACTIONS (6)
  - DIABETES MELLITUS [None]
  - GLUCOSE TOLERANCE IMPAIRED [None]
  - HYPERGLYCAEMIA [None]
  - INSOMNIA [None]
  - SLEEP DISORDER [None]
  - TYPE 2 DIABETES MELLITUS [None]
